FAERS Safety Report 19008526 (Version 1)
Quarter: 2021Q1

REPORT INFORMATION
  Report Type: Spontaneous
  Country: CZ (occurrence: CZ)
  Receive Date: 20210315
  Receipt Date: 20210315
  Transmission Date: 20210420
  Serious: Yes (Life-Threatening, Other)
  Sender: FDA-Public Use
  Company Number: CZ-PFIZER INC-2021225009

PATIENT
  Age: 9 Year
  Sex: Female
  Weight: 30 kg

DRUGS (9)
  1. PREDNISONE. [Concomitant]
     Active Substance: PREDNISONE
     Dosage: 0.67 MG/KG/DAY
  2. SIROLIMUS. [Concomitant]
     Active Substance: SIROLIMUS
     Dosage: UNK
  3. LINEZOLID. [Suspect]
     Active Substance: LINEZOLID
     Indication: MYCOBACTERIUM ABSCESSUS INFECTION
     Dosage: 810 MG/DAY DIVIDED INTO 3 DAILY DOSES
     Route: 042
  4. PREDNISONE. [Concomitant]
     Active Substance: PREDNISONE
     Dosage: 1.67 MG/KG/DAY
  5. VALACICLOVIR [Concomitant]
     Active Substance: VALACYCLOVIR HYDROCHLORIDE
     Dosage: 500 MG ONCE DAILY
  6. BUDESONIDE. [Concomitant]
     Active Substance: BUDESONIDE
     Dosage: 0.3 MG/KG/DAY
  7. MEROPENEM. [Concomitant]
     Active Substance: MEROPENEM
     Dosage: 3 G/DAY IN 3 DAILY DOSES
  8. POSACONAZOLE [Concomitant]
     Active Substance: POSACONAZOLE
     Dosage: 112 MG/DAY IN 3 DAILY DOSES
  9. AMIKACIN. [Concomitant]
     Active Substance: AMIKACIN
     Dosage: 400 MG/DAY IN 2 DAILY DOSES

REACTIONS (7)
  - Antibiotic level above therapeutic [Recovered/Resolved]
  - Neuropathy peripheral [Unknown]
  - Alanine aminotransferase increased [Unknown]
  - Mitochondrial cytopathy [Unknown]
  - Off label use [Unknown]
  - Lactic acidosis [Recovered/Resolved]
  - Toxicity to various agents [Unknown]
